FAERS Safety Report 5102313-7 (Version None)
Quarter: 2006Q3

REPORT INFORMATION
  Report Type: 
  Country: None (occurrence: None)
  Receive Date: 20060908
  Receipt Date: 20060821
  Transmission Date: 20061208
  Serious: Yes (Other)
  Sender: FDA-Public Use
  Company Number: US200608004547

PATIENT
  Sex: Female

DRUGS (2)
  1. CYMBALTA [Suspect]
     Indication: DEPRESSION
     Dosage: 90 MG, DAILY (1/D)
     Dates: start: 20051117
  2. TOPAMAX [Concomitant]

REACTIONS (12)
  - ABNORMAL DREAMS [None]
  - AURA [None]
  - CONVULSION [None]
  - DIZZINESS [None]
  - DRUG DOSE OMISSION [None]
  - FACIAL SPASM [None]
  - FATIGUE [None]
  - HALLUCINATION, VISUAL [None]
  - HEADACHE [None]
  - LOSS OF CONSCIOUSNESS [None]
  - NAUSEA [None]
  - VISION BLURRED [None]
